FAERS Safety Report 5855748-9 (Version None)
Quarter: 2008Q3

REPORT INFORMATION
  Report Type: 
  Country: None (occurrence: None)
  Receive Date: 20080825
  Receipt Date: 20080814
  Transmission Date: 20090109
  Serious: Yes (Hospitalization, Disabling, Other)
  Sender: FDA-Public Use
  Company Number: GB-ELI_LILLY_AND_COMPANY-GB200804006060

PATIENT
  Sex: Female
  Weight: 98.5 kg

DRUGS (15)
  1. ZYPREXA [Suspect]
     Indication: DELUSION
     Dosage: 15 MG, UNK
     Route: 048
     Dates: start: 20071213
  2. ZYPREXA [Suspect]
     Dosage: 10 MG, UNK
     Route: 048
     Dates: start: 20080213, end: 20080624
  3. LITHIUM CARBONATE [Concomitant]
     Indication: BIPOLAR DISORDER
     Dosage: 500 MG, DAILY (1/D)
     Route: 048
     Dates: start: 20080206, end: 20080101
  4. LITHIUM CARBONATE [Concomitant]
     Dosage: 500 MG, UNK
     Route: 048
     Dates: start: 20080101
  5. MIRTAZAPINE [Concomitant]
     Indication: DEPRESSION
     Dosage: 30 MG, UNK
     Route: 048
     Dates: start: 20071115
  6. DIAZEPAM [Concomitant]
     Dosage: 7.5 MG, 3/D
     Route: 048
  7. DIAZEPAM [Concomitant]
     Dosage: 5 MG, 3/D
     Route: 048
  8. ASPIRIN [Concomitant]
     Dosage: 75 MG, EACH MORNING
     Route: 048
  9. ATORVASTATIN [Concomitant]
     Dosage: 20 MG, DAILY (1/D)
  10. ENALAPRIL MALEATE [Concomitant]
     Dosage: 5 MG, DAILY (1/D)
  11. METFORMIN [Concomitant]
     Dosage: 500 MG, 2/D
  12. MIXTARD PORK [Concomitant]
     Dosage: 28 IU, DAILY (1/D)
  13. OMEPRAZOLE [Concomitant]
     Dosage: 20 MG, DAILY (1/D)
  14. PROCYCLIDINE HYDROCHLORIDE 2MG TAB [Concomitant]
     Dosage: 5 MG, DAILY (1/D)
     Route: 048
     Dates: start: 20080227
  15. PEPTAC                             /01521901/ [Concomitant]
     Dosage: 15 ML, UNK
     Route: 048

REACTIONS (4)
  - DYSTONIA [None]
  - HOSPITALISATION [None]
  - MOVEMENT DISORDER [None]
  - TORTICOLLIS [None]
